FAERS Safety Report 7012923-8 (Version None)
Quarter: 2010Q3

REPORT INFORMATION
  Report Type: 
  Country: None (occurrence: None)
  Receive Date: 20100924
  Receipt Date: 20100913
  Transmission Date: 20110219
  Serious: Yes (Other)
  Sender: FDA-Public Use
  Company Number: DE-PFIZER INC-2010115332

PATIENT
  Age: 47 Year
  Sex: Female

DRUGS (1)
  1. LYRICA [Suspect]

REACTIONS (6)
  - DEPRESSED MOOD [None]
  - HEADACHE [None]
  - HYPERHIDROSIS [None]
  - SKIN REACTION [None]
  - SLEEP DISORDER [None]
  - WITHDRAWAL SYNDROME [None]
